FAERS Safety Report 23243789 (Version 1)
Quarter: 2023Q4

REPORT INFORMATION
  Report Type: Spontaneous
  Country: US (occurrence: US)
  Receive Date: 20231130
  Receipt Date: 20231130
  Transmission Date: 20240110
  Serious: No
  Sender: FDA-Public Use
  Company Number: US-CHIESI-2023CHF04168

PATIENT
  Sex: Female

DRUGS (4)
  1. REVCOVI [Suspect]
     Active Substance: ELAPEGADEMASE-LVLR
     Indication: Combined immunodeficiency
     Dosage: 3 VIALS, TWICE A WEEK ON DIFFERENT DAYS
     Route: 030
  2. REVCOVI [Suspect]
     Active Substance: ELAPEGADEMASE-LVLR
     Dosage: 6 VIALS ON ONE DAY PER WEEK
     Route: 030
  3. REVCOVI [Suspect]
     Active Substance: ELAPEGADEMASE-LVLR
     Dosage: ONE DOSE PER WEEK
     Route: 030
  4. IMMUNE GLOBULIN NOS [Concomitant]
     Active Substance: IMMUNE GLOBULIN NOS
     Indication: Product used for unknown indication
     Dosage: 3.5-HOUR, EVERY TWO WEEKS
     Route: 058

REACTIONS (3)
  - Injection site pain [Unknown]
  - Scar [Unknown]
  - Inappropriate schedule of product administration [Unknown]
